FAERS Safety Report 10216740 (Version 2)
Quarter: 2014Q2

REPORT INFORMATION
  Report Type: Spontaneous
  Country: NZ (occurrence: NZ)
  Receive Date: 20140604
  Receipt Date: 20140604
  Transmission Date: 20141212
  Serious: Yes (Other)
  Sender: FDA-Public Use
  Company Number: NZ-PFIZER INC-2014118027

PATIENT
  Age: 41 Year
  Sex: Female
  Weight: 60.5 kg

DRUGS (6)
  1. CHAMPIX [Suspect]
     Indication: SMOKING CESSATION THERAPY
     Dosage: UNK
     Route: 048
     Dates: start: 20140414, end: 201404
  2. OMEPRAZOLE [Concomitant]
     Dosage: UNK, DAILY
  3. ZOPLICONE [Concomitant]
     Indication: INSOMNIA
     Dosage: HALF TABLET
  4. FERROTAB [Concomitant]
     Dosage: UNK
  5. CALCI-TAB [Concomitant]
     Dosage: UNK
  6. MULTIVIT [Concomitant]
     Dosage: UNK

REACTIONS (6)
  - Suicidal ideation [Recovered/Resolved]
  - Flat affect [Recovered/Resolved]
  - Depressed mood [Recovered/Resolved]
  - Apathy [Recovered/Resolved]
  - Fear [Recovered/Resolved]
  - Emotional poverty [Recovered/Resolved]
